FAERS Safety Report 7811925-9 (Version None)
Quarter: 2011Q4

REPORT INFORMATION
  Report Type: 
  Country: None (occurrence: None)
  Receive Date: 20111013
  Receipt Date: 20111007
  Transmission Date: 20120403
  Serious: Yes (Other)
  Sender: FDA-Public Use
  Company Number: PHHY2011AU89118

PATIENT
  Sex: Female

DRUGS (2)
  1. VITAMINS NOS [Concomitant]
     Dosage: UNK UKN, UNK
  2. ZOLEDRONOC ACID [Suspect]
     Route: 042

REACTIONS (4)
  - NAUSEA [None]
  - LIPASE INCREASED [None]
  - IMMUNOGLOBULINS INCREASED [None]
  - PANCREATITIS [None]
